FAERS Safety Report 5442895-9 (Version None)
Quarter: 2007Q3

REPORT INFORMATION
  Report Type: 
  Country: None (occurrence: None)
  Receive Date: 20070831
  Receipt Date: 20070831
  Transmission Date: 20080115
  Serious: Yes (Other)
  Sender: FDA-Public Use
  Company Number: None

PATIENT
  Age: 44 Year
  Sex: Male
  Weight: 76.6 kg

DRUGS (7)
  1. VIREAD [Suspect]
     Indication: HIV INFECTION
     Dosage: 1 TABLET PO QD
     Route: 048
     Dates: start: 20040201
  2. VALPROIC ACID [Suspect]
     Indication: HIV INFECTION
     Dosage: 2 TABS QD PO
     Route: 048
     Dates: start: 20060125
  3. REYATAZ [Concomitant]
  4. ZERIT [Concomitant]
  5. VALTREX [Concomitant]
  6. ANDROGEL [Concomitant]
  7. VITAMINS [Concomitant]

REACTIONS (1)
  - HYPOPHOSPHATAEMIA [None]
